FAERS Safety Report 9798511 (Version 1)
Quarter: 2014Q1

REPORT INFORMATION
  Report Type: Spontaneous
  Country: US (occurrence: US)
  Receive Date: 20140106
  Receipt Date: 20140106
  Transmission Date: 20141002
  Serious: No
  Sender: FDA-Public Use
  Company Number: US-BAYER-2014-001559

PATIENT
  Age: 56 Year
  Sex: Female
  Weight: 52.15 kg

DRUGS (2)
  1. ALEVE CAPLET [Suspect]
     Indication: BACK PAIN
     Dosage: 1 DF, ONCE
     Route: 048
     Dates: start: 201306, end: 201306
  2. GLUCOSAMINE [Concomitant]

REACTIONS (1)
  - Drug ineffective [None]
